FAERS Safety Report 4628472-8 (Version None)
Quarter: 2005Q2

REPORT INFORMATION
  Report Type: 
  Country: None (occurrence: None)
  Receive Date: 20050404
  Receipt Date: 20050318
  Transmission Date: 20051028
  Serious: Yes (Death, Life-Threatening, Hospitalization, Disabling)
  Sender: FDA-Public Use
  Company Number: 2005-0008139

PATIENT
  Sex: Male

DRUGS (4)
  1. HEPSERA [Suspect]
     Indication: HEPATITIS B
     Dosage: 10 MG, 1 IN 1 D, ORAL
     Route: 048
     Dates: start: 20041201, end: 30050305
  2. PROPRANOLOL HYDROCHLORIDE [Concomitant]
  3. SPIRONOLACTONE [Concomitant]
  4. OMEPRAZOLE [Concomitant]

REACTIONS (2)
  - CHOLELITHIASIS [None]
  - PANCREATITIS [None]
